FAERS Safety Report 14498658 (Version 5)
Quarter: 2018Q2

REPORT INFORMATION
  Report Type: Spontaneous
  Country: US (occurrence: US)
  Receive Date: 20180207
  Receipt Date: 20180518
  Transmission Date: 20180711
  Serious: Yes (Other)
  Sender: FDA-Public Use
  Company Number: US-AMGEN-USASP2018014331

PATIENT
  Age: 66 Year
  Sex: Female
  Weight: 125.5 kg

DRUGS (3)
  1. VITAMIN D [Concomitant]
     Active Substance: CHOLECALCIFEROL
     Dosage: 5000 IU, UNK
     Dates: start: 20170731
  2. PARSABIV [Suspect]
     Active Substance: ETELCALCETIDE HYDROCHLORIDE
     Indication: HYPERPARATHYROIDISM SECONDARY
     Dosage: 2.5 MG, 3 TIMES/WK
     Route: 042
     Dates: start: 20180118, end: 20180120
  3. TUMS [Concomitant]
     Active Substance: CALCIUM CARBONATE
     Dosage: 750 MG, UNK 4 TABLETS
     Dates: start: 20161229

REACTIONS (4)
  - Nausea [Unknown]
  - Deafness [Recovered/Resolved]
  - Feeling abnormal [Unknown]
  - Underdose [Unknown]

NARRATIVE: CASE EVENT DATE: 20180118
